FAERS Safety Report 4756862-1 (Version None)
Quarter: 2005Q3

REPORT INFORMATION
  Report Type: 
  Country: None (occurrence: None)
  Receive Date: 20050830
  Receipt Date: 20050705
  Transmission Date: 20060218
  Serious: Yes (Other)
  Sender: FDA-Public Use
  Company Number: 2005UW10055

PATIENT
  Age: 44 Year
  Sex: Male
  Weight: 102 kg

DRUGS (2)
  1. CRESTOR [Suspect]
     Indication: HYPERCHOLESTEROLAEMIA
     Route: 048
     Dates: start: 20050201, end: 20050624
  2. DIOVAN [Concomitant]
     Indication: HYPERTENSION
     Route: 048
     Dates: start: 19990820, end: 20050624

REACTIONS (2)
  - CORNEAL DISORDER [None]
  - VISUAL ACUITY TESTS ABNORMAL [None]
